FAERS Safety Report 5744006-9 (Version None)
Quarter: 2008Q2

REPORT INFORMATION
  Report Type: 
  Country: None (occurrence: None)
  Receive Date: 20080520
  Receipt Date: 20080514
  Transmission Date: 20081010
  Serious: Yes (Other)
  Sender: FDA-Public Use
  Company Number: PH-NOVOPROD-275058

PATIENT
  Sex: Female
  Weight: 60 kg

DRUGS (2)
  1. NOVOLOG MIX 70/30 [Suspect]
     Indication: DIABETES MELLITUS
     Dosage: 20 IU, QD
     Route: 058
  2. NOVOLOG MIX 70/30 [Suspect]
     Dosage: 20 IU, QD
     Route: 058
     Dates: start: 20070620, end: 20070705

REACTIONS (1)
  - INTRA-UTERINE DEATH [None]
